FAERS Safety Report 20616547 (Version 1)
Quarter: 2022Q1

REPORT INFORMATION
  Report Type: Spontaneous
  Country: EG (occurrence: EG)
  Receive Date: 20220321
  Receipt Date: 20220321
  Transmission Date: 20220423
  Serious: Yes (Death)
  Sender: FDA-Public Use
  Company Number: EG-PFIZER INC-202101704412

PATIENT
  Age: 71 Year
  Sex: Female

DRUGS (2)
  1. SUTENT [Suspect]
     Active Substance: SUNITINIB MALATE
     Indication: Neuroendocrine tumour
     Dosage: 50 MG, CYCLIC (1 TAB DAILY FOR 4 WEEKS ON AND 2 WEEKS OFF )
     Route: 048
  2. SUTENT [Suspect]
     Active Substance: SUNITINIB MALATE
     Dosage: 37.5 MG, DAILY (12.5 MG, 3 TABS DAILY)
     Route: 048
     Dates: start: 20211228, end: 20220309

REACTIONS (1)
  - Death [Fatal]
